FAERS Safety Report 8078852-6 (Version None)
Quarter: 2012Q1

REPORT INFORMATION
  Report Type: 
  Country: None (occurrence: None)
  Receive Date: 20120127
  Receipt Date: 20110121
  Transmission Date: 20120608
  Serious: No
  Sender: FDA-Public Use
  Company Number: US-ABBOTT-11P-163-0699839-00

PATIENT
  Age: 43 Year
  Sex: Female

DRUGS (5)
  1. ENTOCORT EC [Concomitant]
     Indication: CROHN'S DISEASE
  2. HUMIRA [Suspect]
     Indication: CROHN'S DISEASE
     Dates: start: 20101207
  3. AZATHIOPRINE [Concomitant]
     Indication: CROHN'S DISEASE
  4. PENTASA [Concomitant]
     Indication: CROHN'S DISEASE
  5. VITAMIN B-12 [Concomitant]
     Indication: PRODUCT USED FOR UNKNOWN INDICATION

REACTIONS (3)
  - NASOPHARYNGITIS [None]
  - OROPHARYNGEAL PAIN [None]
  - UPPER RESPIRATORY TRACT CONGESTION [None]
